FAERS Safety Report 8613655-2 (Version None)
Quarter: 2012Q3

REPORT INFORMATION
  Report Type: 
  Country: None (occurrence: None)
  Receive Date: 20120823
  Receipt Date: 20120725
  Transmission Date: 20120928
  Serious: No
  Sender: FDA-Public Use
  Company Number: US-009507513-1208USA002456

PATIENT

DRUGS (1)
  1. NUVARING [Suspect]
     Route: 067

REACTIONS (4)
  - COITAL BLEEDING [None]
  - CERVICITIS [None]
  - WEIGHT INCREASED [None]
  - METRORRHAGIA [None]
